FAERS Safety Report 21486342 (Version 1)
Quarter: 2022Q4

REPORT INFORMATION
  Report Type: Spontaneous
  Country: US (occurrence: US)
  Receive Date: 20221020
  Receipt Date: 20221020
  Transmission Date: 20230112
  Serious: No
  Sender: FDA-Public Use
  Company Number: US-TARO PHARMACEUTICALS USA INC.-2022TAR00663

PATIENT

DRUGS (2)
  1. CLOTRIMAZOLE [Suspect]
     Active Substance: CLOTRIMAZOLE
     Indication: Fungal skin infection
     Dosage: UNK
     Route: 061
     Dates: start: 202111
  2. LAC-HYDRIN [Concomitant]
     Active Substance: AMMONIUM LACTATE
     Indication: Dry skin
     Dosage: UNK
     Route: 065

REACTIONS (1)
  - Skin swelling [Recovering/Resolving]
